FAERS Safety Report 21265683 (Version 1)
Quarter: 2022Q3

REPORT INFORMATION
  Report Type: Spontaneous
  Country: US (occurrence: None)
  Receive Date: 20220828
  Receipt Date: 20220828
  Transmission Date: 20221027
  Serious: Yes (Other)
  Sender: FDA-Public Use
  Company Number: None

PATIENT
  Age: 26 Year
  Sex: Female
  Weight: 48.6 kg

DRUGS (2)
  1. QELBREE [Suspect]
     Active Substance: VILOXAZINE HYDROCHLORIDE
     Indication: Attention deficit hyperactivity disorder
     Dosage: OTHER QUANTITY : 2 CAPSULE(S);?
     Route: 048
     Dates: start: 20220715
  2. Oral birth control Tri-Legest Fe [Concomitant]

REACTIONS (9)
  - Insomnia [None]
  - Yawning [None]
  - Fatigue [None]
  - Anxiety [None]
  - Headache [None]
  - Myalgia [None]
  - Initial insomnia [None]
  - Heart rate increased [None]
  - Tachyphrenia [None]

NARRATIVE: CASE EVENT DATE: 20220827
